FAERS Safety Report 21050560 (Version 1)
Quarter: 2022Q3

REPORT INFORMATION
  Report Type: Spontaneous
  Country: US (occurrence: US)
  Receive Date: 20220707
  Receipt Date: 20220707
  Transmission Date: 20221026
  Serious: No
  Sender: FDA-Public Use
  Company Number: US-ORGANON-O2207USA000400

PATIENT
  Age: 29 Year
  Sex: Male

DRUGS (3)
  1. REMERON [Suspect]
     Active Substance: MIRTAZAPINE
     Indication: Major depression
     Dosage: 45 MILLIGRAM, PER DAY
     Route: 048
  2. RISPERIDONE [Concomitant]
     Active Substance: RISPERIDONE
     Indication: Aggression
     Dosage: 4 MILLIGRAM, DAILY
  3. RISPERIDONE [Concomitant]
     Active Substance: RISPERIDONE
     Indication: Irritability

REACTIONS (1)
  - Drug ineffective [Unknown]
